FAERS Safety Report 6623978-4 (Version None)
Quarter: 2010Q1

REPORT INFORMATION
  Report Type: 
  Country: None (occurrence: None)
  Receive Date: 20100310
  Receipt Date: 20100225
  Transmission Date: 20100710
  Serious: Yes (Other)
  Sender: FDA-Public Use
  Company Number: US-PFIZER INC-2010006885

PATIENT
  Sex: Female
  Weight: 99.773 kg

DRUGS (4)
  1. LYRICA [Suspect]
     Indication: NEURALGIA
     Dosage: 300 MG, 2X/DAY
     Route: 048
     Dates: start: 20091225
  2. LYRICA [Suspect]
     Indication: HEADACHE
  3. OXYCONTIN [Concomitant]
     Dosage: 20 MG, UNK
     Dates: start: 20100101, end: 20100202
  4. EFFEXOR [Concomitant]
     Indication: DEPRESSION
     Dosage: UNK
     Dates: start: 20090301

REACTIONS (6)
  - AMNESIA [None]
  - DIPLOPIA [None]
  - IMPAIRED DRIVING ABILITY [None]
  - SEDATION [None]
  - SOMNOLENCE [None]
  - VISION BLURRED [None]
